FAERS Safety Report 24380204 (Version 1)
Quarter: 2024Q3

REPORT INFORMATION
  Report Type: Spontaneous
  Country: US (occurrence: US)
  Receive Date: 20240930
  Receipt Date: 20240930
  Transmission Date: 20241017
  Serious: No
  Sender: CALLIDITAS THERAPEUTICS
  Company Number: US-Calliditas-2024CAL01349

PATIENT
  Age: 56 Year
  Sex: Male
  Weight: 83.5 kg

DRUGS (10)
  1. TARPEYO [Suspect]
     Active Substance: BUDESONIDE
     Indication: Chronic kidney disease
     Route: 048
     Dates: start: 20240620
  2. BRENZAVVY [Concomitant]
     Active Substance: BEXAGLIFLOZIN
  3. TELMISARTAN [Concomitant]
     Active Substance: TELMISARTAN
  4. ALLOPURINOL [Concomitant]
     Active Substance: ALLOPURINOL
  5. ASPIRIN [Concomitant]
     Active Substance: ASPIRIN
  6. VITAMIN D3 [Concomitant]
     Active Substance: CHOLECALCIFEROL
  7. FLONASE [Concomitant]
     Active Substance: FLUTICASONE PROPIONATE
  8. METFORMIN [Concomitant]
     Active Substance: METFORMIN HYDROCHLORIDE
  9. TOPROL XL [Concomitant]
     Active Substance: METOPROLOL SUCCINATE
  10. CRESTOR [Concomitant]
     Active Substance: ROSUVASTATIN CALCIUM

REACTIONS (4)
  - Headache [Not Recovered/Not Resolved]
  - Ocular hyperaemia [Unknown]
  - Facial pain [Unknown]
  - Chromaturia [Unknown]

NARRATIVE: CASE EVENT DATE: 20240701
